FAERS Safety Report 7673016-X (Version None)
Quarter: 2011Q3

REPORT INFORMATION
  Report Type: 
  Country: None (occurrence: None)
  Receive Date: 20110809
  Receipt Date: 20110802
  Transmission Date: 20111222
  Serious: Yes (Life-Threatening, Hospitalization)
  Sender: FDA-Public Use
  Company Number: JP-ASTRAZENECA-2001SE02327

PATIENT
  Age: 22258 Day
  Sex: Female
  Weight: 49 kg

DRUGS (12)
  1. CANDESARTAN CILEXETIL [Suspect]
     Indication: HYPERTENSION
     Route: 048
     Dates: start: 20000120, end: 20000204
  2. NORVASC [Concomitant]
     Route: 048
     Dates: start: 20010302, end: 20010302
  3. CANDESARTAN CILEXETIL [Suspect]
     Route: 048
     Dates: start: 20000808, end: 20010219
  4. CARVEDILOL [Concomitant]
     Indication: HYPERTENSION
     Route: 048
     Dates: start: 20000120, end: 20000204
  5. DIAZEPAM [Concomitant]
     Indication: HYPERTENSION
     Route: 048
     Dates: start: 20000101
  6. NORVASC [Concomitant]
     Route: 048
     Dates: start: 20010305, end: 20010305
  7. MEILAX [Concomitant]
     Indication: INSOMNIA
     Route: 048
     Dates: start: 20001001, end: 20010218
  8. NORVASC [Concomitant]
     Indication: HYPERTENSION
     Route: 048
     Dates: start: 20001016, end: 20010219
  9. CARVEDILOL [Concomitant]
     Route: 048
     Dates: start: 20010301, end: 20010301
  10. CARVEDILOL [Concomitant]
     Route: 048
     Dates: start: 20000808, end: 20010219
  11. CANDESARTAN CILEXETIL [Suspect]
     Route: 048
     Dates: start: 20010227, end: 20010301
  12. LOCHOLEST [Concomitant]
     Indication: HYPERLIPIDAEMIA
     Route: 048
     Dates: start: 20001001, end: 20010218

REACTIONS (4)
  - ABDOMINAL PAIN [None]
  - URTICARIA [None]
  - ANAPHYLACTIC SHOCK [None]
  - DIARRHOEA [None]
